FAERS Safety Report 7193089-0 (Version None)
Quarter: 2010Q4

REPORT INFORMATION
  Report Type: 
  Country: None (occurrence: None)
  Receive Date: 20101223
  Receipt Date: 20100830
  Transmission Date: 20110411
  Serious: No
  Sender: FDA-Public Use
  Company Number: US-AMGEN-KDL434735

PATIENT

DRUGS (2)
  1. ENBREL [Suspect]
     Indication: RHEUMATOID ARTHRITIS
     Dosage: UNK UNK, UNK
     Dates: end: 20100101
  2. METFORMIN [Suspect]
     Dosage: UNK UNK, UNK
     Dates: end: 20100829

REACTIONS (2)
  - ADVERSE DRUG REACTION [None]
  - RASH VESICULAR [None]
